FAERS Safety Report 6239899-5 (Version None)
Quarter: 2009Q2

REPORT INFORMATION
  Report Type: 
  Country: None (occurrence: None)
  Receive Date: 20090623
  Receipt Date: 20090616
  Transmission Date: 20091009
  Serious: Yes (Hospitalization)
  Sender: FDA-Public Use
  Company Number: US-ELI_LILLY_AND_COMPANY-US200812002414

PATIENT
  Sex: Female
  Weight: 117.46 kg

DRUGS (7)
  1. BYETTA [Suspect]
     Dosage: 5 UG, UNKNOWN
     Route: 065
     Dates: start: 20060512, end: 20060101
  2. BYETTA [Suspect]
     Dosage: 10 UG, 2/D
     Route: 065
     Dates: start: 20060101, end: 20061116
  3. BYETTA [Suspect]
     Dosage: 10 UG, 2/D
     Dates: start: 20061118, end: 20070801
  4. VYTORIN [Concomitant]
     Dosage: UNK, DAILY (1/D)
     Route: 065
  5. GLUCOTROL [Concomitant]
     Dosage: UNK, UNKNOWN
     Route: 065
  6. METFORMIN HCL [Concomitant]
     Dosage: UNK, UNKNOWN
     Route: 065
     Dates: end: 20070701
  7. NEXIUM [Concomitant]

REACTIONS (6)
  - CHOLECYSTITIS ACUTE [None]
  - DYSPEPSIA [None]
  - GASTRITIS [None]
  - PANCREATITIS ACUTE [None]
  - PANCREATITIS CHRONIC [None]
  - PERIARTHRITIS [None]
